FAERS Safety Report 17049892 (Version 1)
Quarter: 2019Q4

REPORT INFORMATION
  Report Type: Spontaneous
  Country: US (occurrence: US)
  Receive Date: 20191119
  Receipt Date: 20191119
  Transmission Date: 20200122
  Serious: Yes (Other)
  Sender: FDA-Public Use
  Company Number: US-BAUSCH-BL-2019-055783

PATIENT
  Age: 85 Year
  Sex: Female

DRUGS (1)
  1. SOOTHE XP [Suspect]
     Active Substance: LIGHT MINERAL OIL\MINERAL OIL
     Indication: DRY EYE
     Dosage: USING THE SUSPECT PRODUCT FOR FEW YEARS, AS NEEDED.
     Route: 047

REACTIONS (3)
  - Drug ineffective [Unknown]
  - Eye irritation [Unknown]
  - Surgery [Unknown]
